FAERS Safety Report 17833743 (Version 1)
Quarter: 2020Q2

REPORT INFORMATION
  Report Type: Spontaneous
  Country: US (occurrence: US)
  Receive Date: 20200527
  Receipt Date: 20200527
  Transmission Date: 20200714
  Serious: Yes (Hospitalization)
  Sender: FDA-Public Use
  Company Number: None

PATIENT
  Age: 74 Year
  Sex: Female

DRUGS (14)
  1. LEVOTHYROXIN [Concomitant]
     Active Substance: LEVOTHYROXINE
  2. XELJANZ [Suspect]
     Active Substance: TOFACITINIB CITRATE
     Indication: RHEUMATOID ARTHRITIS
     Route: 048
     Dates: start: 20190806
  3. DICLOFENAC [Concomitant]
     Active Substance: DICLOFENAC
  4. VITAMIN D3 [Concomitant]
     Active Substance: CHOLECALCIFEROL
  5. MULTIVITAMIN [Concomitant]
     Active Substance: VITAMINS
  6. FOLIC ACID. [Concomitant]
     Active Substance: FOLIC ACID
  7. SERTRALINE [Concomitant]
     Active Substance: SERTRALINE HYDROCHLORIDE
  8. LIDOCAINE. [Concomitant]
     Active Substance: LIDOCAINE
  9. ARAVA [Concomitant]
     Active Substance: LEFLUNOMIDE
  10. MORPHINE [Concomitant]
     Active Substance: MORPHINE
  11. TRAVATAN [Concomitant]
     Active Substance: TRAVOPROST
  12. METHOTREXATE. [Concomitant]
     Active Substance: METHOTREXATE
  13. PREDNISONE. [Concomitant]
     Active Substance: PREDNISONE
  14. BACTRIM [Concomitant]
     Active Substance: SULFAMETHOXAZOLE\TRIMETHOPRIM

REACTIONS (2)
  - Rib fracture [None]
  - Fall [None]

NARRATIVE: CASE EVENT DATE: 20200516
